FAERS Safety Report 24766347 (Version 5)
Quarter: 2025Q2

REPORT INFORMATION
  Report Type: Spontaneous
  Country: US (occurrence: US)
  Receive Date: 20241223
  Receipt Date: 20250502
  Transmission Date: 20250717
  Serious: Yes (Other)
  Sender: PFIZER
  Company Number: US-PFIZER INC-PV202400166475

PATIENT
  Age: 39 Year
  Sex: Female

DRUGS (2)
  1. TUKYSA [Suspect]
     Active Substance: TUCATINIB
  2. TUKYSA [Suspect]
     Active Substance: TUCATINIB
     Dosage: TAKE TWO TABLETS BY MOUTH TWICE DAILY
     Route: 048

REACTIONS (5)
  - Brain operation [Unknown]
  - Brain oedema [Unknown]
  - Sinusitis [Unknown]
  - Memory impairment [Not Recovered/Not Resolved]
  - Communication disorder [Unknown]

NARRATIVE: CASE EVENT DATE: 20241211
